FAERS Safety Report 18037567 (Version 1)
Quarter: 2020Q3

REPORT INFORMATION
  Report Type: Spontaneous
  Country: IN (occurrence: IN)
  Receive Date: 20200717
  Receipt Date: 20200717
  Transmission Date: 20201103
  Serious: Yes (Other)
  Sender: FDA-Public Use
  Company Number: IN-MYLANLABS-2020M1064382

PATIENT
  Sex: Female

DRUGS (2)
  1. ZOLEDRONIC ACID [Suspect]
     Active Substance: ZOLEDRONIC ACID
     Indication: FIBROUS DYSPLASIA OF BONE
     Dosage: RECEIVED A TOTAL OF 60 DOSES; CUMULATIVE DOSE: 300 MG
     Route: 065
  2. RISEDRONATE [Suspect]
     Active Substance: RISEDRONATE SODIUM
     Indication: FIBROUS DYSPLASIA OF BONE
     Dosage: RECEIVED ON ALTERNATE DAY, CUMULATIVE DOSE: MORE THAN 9000MG
     Route: 048

REACTIONS (2)
  - Off label use [Unknown]
  - Multiple-drug resistance [Unknown]
